FAERS Safety Report 8034236-8 (Version None)
Quarter: 2011Q4

REPORT INFORMATION
  Report Type: 
  Country: None (occurrence: None)
  Receive Date: 20111202
  Receipt Date: 20110804
  Transmission Date: 20120403
  Serious: Yes (Disabling, Other)
  Sender: FDA-Public Use
  Company Number: WAES 1108USA00606

PATIENT
  Age: 54 Year
  Sex: Female

DRUGS (2)
  1. ALENDRONATE SODIUM [Suspect]
     Indication: OSTEOPENIA
     Dosage: 70 MG/UNK/PO
     Route: 048
     Dates: start: 20080329, end: 20090724
  2. FOSAMAX [Suspect]
     Indication: OSTEOPENIA
     Dosage: 70 MG/UNK/PO
     Route: 048
     Dates: start: 20011108, end: 20020601

REACTIONS (8)
  - PAIN IN EXTREMITY [None]
  - FEMUR FRACTURE [None]
  - ANXIETY [None]
  - SPONDYLOLISTHESIS [None]
  - BLOOD CHOLESTEROL INCREASED [None]
  - BACK PAIN [None]
  - RADICULOPATHY [None]
  - BACTERIAL INFECTION [None]
